FAERS Safety Report 6877284-3 (Version None)
Quarter: 2010Q3

REPORT INFORMATION
  Report Type: 
  Country: None (occurrence: None)
  Receive Date: 20100719
  Receipt Date: 20100706
  Transmission Date: 20110219
  Serious: Yes (Other)
  Sender: FDA-Public Use
  Company Number: AEDEU201000254

PATIENT
  Age: 61 Year
  Sex: Male
  Weight: 103 kg

DRUGS (10)
  1. GAMUNEX [Suspect]
     Indication: SECONDARY IMMUNODEFICIENCY
     Dosage: 10 GM; QM; IV
     Route: 042
     Dates: start: 20090129, end: 20090129
  2. GAMUNEX [Suspect]
     Indication: SECONDARY IMMUNODEFICIENCY
     Dosage: 10 GM; QM; IV
     Route: 042
     Dates: start: 20100310, end: 20100310
  3. GAMUNEX [Suspect]
     Indication: SECONDARY IMMUNODEFICIENCY
     Dosage: 10 GM; QM; IV
     Route: 042
     Dates: start: 20100409, end: 20100409
  4. GAMUNEX [Suspect]
     Indication: SECONDARY IMMUNODEFICIENCY
     Dosage: 10 GM; QM; IV
     Route: 042
     Dates: start: 20100507, end: 20100507
  5. GAMUNEX [Suspect]
     Indication: SECONDARY IMMUNODEFICIENCY
     Dosage: 10 GM; QM; IV
     Route: 042
     Dates: start: 20100609, end: 20100609
  6. GAMUNEX [Suspect]
     Indication: SECONDARY IMMUNODEFICIENCY
     Dosage: 10 GM; QM; IV
     Route: 042
     Dates: start: 20091029
  7. GAMUNEX [Suspect]
  8. GAMUNEX [Suspect]
  9. GAMUNEX [Suspect]
  10. PENTACARINAT [Concomitant]

REACTIONS (1)
  - HEPATITIS E [None]
